FAERS Safety Report 6456843-6 (Version None)
Quarter: 2009Q4

REPORT INFORMATION
  Report Type: 
  Country: None (occurrence: None)
  Receive Date: 20091125
  Receipt Date: 20091008
  Transmission Date: 20100525
  Serious: Yes (Hospitalization)
  Sender: FDA-Public Use
  Company Number: GB-ASTRAZENECA-2009SE27982

PATIENT
  Age: 18410 Day
  Sex: Female
  Weight: 40.7 kg

DRUGS (23)
  1. BUPIVACAINE [Suspect]
     Indication: PAIN
     Route: 037
     Dates: start: 20090527
  2. CLONIDINE [Suspect]
     Indication: PAIN
     Dosage: 159.87 MCG/ML
     Route: 037
     Dates: start: 20090527
  3. ZICONOTIDE [Suspect]
     Indication: PAIN
     Route: 065
  4. HYDROMORPHONE HCL [Concomitant]
     Indication: PAIN
     Route: 037
  5. AMITRIPTYLINE HCL [Concomitant]
     Indication: PAIN
     Dates: start: 20010101
  6. ONDANSETRON [Concomitant]
     Indication: NAUSEA
     Dates: start: 19960101
  7. CODEINE PHOSPHATE [Concomitant]
     Indication: PAIN
     Dates: start: 19970101
  8. CHLORPHENIRAMINE [Concomitant]
     Indication: HYPERSENSITIVITY
     Dates: start: 19961001
  9. DOCUSATE [Concomitant]
     Indication: LAXATIVE SUPPORTIVE CARE
     Dates: start: 19960101
  10. FOLIC ACID [Concomitant]
     Indication: ANAEMIA
     Dates: start: 20010101
  11. TIOTROPIUM [Concomitant]
     Indication: ASTHMA
     Route: 055
     Dates: start: 19870101
  12. GABAPENTIN [Concomitant]
     Indication: PAIN
     Route: 048
     Dates: start: 20060101
  13. DICLOFENAC [Concomitant]
     Indication: PAIN
     Route: 047
     Dates: start: 20060101
  14. QUININE SULPHATE [Concomitant]
     Indication: MUSCLE SPASMS
     Route: 048
     Dates: start: 19970101
  15. LANSOPRAZOLE [Concomitant]
     Indication: GASTROOESOPHAGEAL REFLUX DISEASE
     Route: 048
     Dates: start: 19960101
  16. SUCRALFATE [Concomitant]
     Indication: GASTRITIS PROPHYLAXIS
     Route: 048
     Dates: start: 19940101
  17. ALBUTEROL [Concomitant]
     Indication: ASTHMA
     Route: 055
     Dates: start: 19870101
  18. ORAMORPH SR [Concomitant]
     Indication: PAIN
     Route: 048
     Dates: start: 20000101
  19. CYCLIZINE [Concomitant]
     Indication: NAUSEA
     Route: 048
     Dates: start: 20010101
  20. CLOTRIMAZOLE [Concomitant]
     Indication: SKIN INFECTION
     Route: 061
     Dates: start: 19970101
  21. FUROSEMIDE [Concomitant]
     Indication: DIURETIC THERAPY
     Route: 048
     Dates: start: 19970101
  22. BUCLESONIDE POWDER INHALER [Concomitant]
     Indication: ASTHMA
     Route: 055
     Dates: start: 19870101
  23. HYDROXOCOBALAMIN [Concomitant]
     Indication: ANAEMIA
     Route: 055
     Dates: start: 20060101

REACTIONS (1)
  - MALNUTRITION [None]
